FAERS Safety Report 24334171 (Version 1)
Quarter: 2024Q3

REPORT INFORMATION
  Report Type: Spontaneous
  Country: US (occurrence: None)
  Receive Date: 20240918
  Receipt Date: 20240918
  Transmission Date: 20241016
  Serious: Yes (Disabling)
  Sender: Public
  Company Number: None

PATIENT
  Age: 33 Year
  Sex: 0
  Weight: 83.25 kg

DRUGS (2)
  1. LAMOTRIGINE [Suspect]
     Active Substance: LAMOTRIGINE
     Indication: Depression
     Route: 048
     Dates: start: 20210314, end: 20220308
  2. QUETIAPINE [Suspect]
     Active Substance: QUETIAPINE

REACTIONS (13)
  - Arthralgia [None]
  - Mobility decreased [None]
  - Arthralgia [None]
  - Arthralgia [None]
  - Arthralgia [None]
  - Dizziness [None]
  - Therapy change [None]
  - Decreased appetite [None]
  - Headache [None]
  - Abdominal discomfort [None]
  - Anxiety [None]
  - Brain fog [None]
  - Depression [None]
